FAERS Safety Report 5212785-5 (Version None)
Quarter: 2007Q1

REPORT INFORMATION
  Report Type: 
  Country: None (occurrence: None)
  Receive Date: 20070118
  Receipt Date: 20070118
  Transmission Date: 20070707
  Serious: Yes (Life-Threatening)
  Sender: FDA-Public Use
  Company Number: None

PATIENT
  Age: 46 Year
  Sex: Female
  Weight: 81.6475 kg

DRUGS (2)
  1. EFFEXOR XR [Suspect]
     Indication: DEPRESSION
     Dosage: 750MG BID PO
     Route: 048
     Dates: start: 20060401, end: 20061129
  2. EFFEXOR XR [Concomitant]

REACTIONS (7)
  - ABASIA [None]
  - ARTHRALGIA [None]
  - BONE PAIN [None]
  - DRUG EFFECT DECREASED [None]
  - MUSCULOSKELETAL STIFFNESS [None]
  - MYALGIA [None]
  - PAIN [None]
